FAERS Safety Report 8125210-1 (Version None)
Quarter: 2012Q1

REPORT INFORMATION
  Report Type: 
  Country: None (occurrence: None)
  Receive Date: 20120209
  Receipt Date: 20120201
  Transmission Date: 20120608
  Serious: Yes (Death, Other)
  Sender: FDA-Public Use
  Company Number: JP-PFIZER INC-2012010866

PATIENT
  Age: 83 Year
  Sex: Male

DRUGS (16)
  1. CLINDAMYCIN [Concomitant]
     Dosage: 600 MILLIGRAM/DAY
     Dates: start: 20111121, end: 20111124
  2. ELNEOPA NO.2 [Suspect]
     Dosage: 2000 ML, UNK
     Route: 041
  3. ISONIAZID [Concomitant]
     Dosage: 200 MILLIGRAM/DAY
     Route: 048
  4. RIFAMPICIN [Concomitant]
     Dosage: 300 MILLIGRAM/DAY
     Route: 048
  5. MUCOSTA [Concomitant]
     Dosage: 300 MILLIGRAM/DAY
     Route: 048
  6. CEFTAZIDIME PENTAHYDRATE [Concomitant]
     Dosage: 2000 MILLIGRAM/DAY
     Route: 042
     Dates: end: 20111109
  7. PENMALIN [Concomitant]
     Dosage: 2000 MILLIGRAM/DAY
     Dates: start: 20111109, end: 20111113
  8. NEO-MINOPHAGEN C [Concomitant]
     Dosage: 20 MILLILITRE/DAY
     Route: 042
     Dates: start: 20111110
  9. PYRIDOXINE HCL [Concomitant]
     Dosage: 150 MILLIGRAM/DAY
     Route: 048
  10. FAMOTIDINE [Concomitant]
     Dosage: 20 MILLIGRAM/DAY
     Route: 048
  11. PENMALIN [Concomitant]
     Dosage: 2000 MILLIGRAM/DAY
     Dates: start: 20111121, end: 20111129
  12. MEROPENEM [Concomitant]
     Dosage: 1000 MILLIGRAM/DAY
     Dates: start: 20111125, end: 20111129
  13. AMLODIPINE [Suspect]
     Indication: HYPERTENSION
     Dosage: 2.5 MG, UNK
     Route: 048
     Dates: start: 20111108, end: 20111203
  14. LOSARTAN POTASSIUM [Suspect]
     Indication: HYPERTENSION
     Dosage: 25 MG, UNK
     Route: 048
     Dates: start: 20111108, end: 20111203
  15. ETHAMBUTOL HYDROCHLORIDE [Concomitant]
     Dosage: 500 MILLIGRAM/DAY
     Route: 048
  16. SODIUM CHLORIDE [Concomitant]
     Dosage: 6000 MILLIGRAM/DAY
     Route: 048

REACTIONS (2)
  - CARDIAC FAILURE CONGESTIVE [None]
  - PNEUMONIA ASPIRATION [None]
